FAERS Safety Report 4363608-8 (Version None)
Quarter: 2004Q2

REPORT INFORMATION
  Report Type: 
  Country: None (occurrence: None)
  Receive Date: 20040524
  Receipt Date: 20040524
  Transmission Date: 20050107
  Serious: Yes (Disabling)
  Sender: FDA-Public Use
  Company Number: None

PATIENT
  Age: 44 Year
  Sex: Female
  Weight: 78.9259 kg

DRUGS (2)
  1. ORTHO EVRA [Suspect]
     Indication: MENSTRUATION IRREGULAR
     Dosage: ORTHO-EVRA PATCH CUTANEOUS
     Route: 003
     Dates: start: 20040425, end: 20040516
  2. VIOX [Concomitant]

REACTIONS (2)
  - PHOTOPSIA [None]
  - VISUAL DISTURBANCE [None]
